FAERS Safety Report 7919709-8 (Version None)
Quarter: 2011Q4

REPORT INFORMATION
  Report Type: 
  Country: None (occurrence: None)
  Receive Date: 20111115
  Receipt Date: 20111110
  Transmission Date: 20120403
  Serious: Yes (Other)
  Sender: FDA-Public Use
  Company Number: US-006290

PATIENT
  Age: 51 Year
  Sex: Female
  Weight: 73.0291 kg

DRUGS (1)
  1. TRANEXAMIC ACID [Suspect]
     Indication: MENORRHAGIA
     Dosage: (1300 MG TID ORAL)
     Route: 048
     Dates: start: 20110909, end: 20110910

REACTIONS (1)
  - DEEP VEIN THROMBOSIS [None]
